FAERS Safety Report 5757020-4 (Version None)
Quarter: 2008Q2

REPORT INFORMATION
  Report Type: 
  Country: None (occurrence: None)
  Receive Date: 20080603
  Receipt Date: 20080523
  Transmission Date: 20081010
  Serious: Yes (Other)
  Sender: FDA-Public Use
  Company Number: A0683548A

PATIENT
  Age: 40 Year
  Sex: Male
  Weight: 65 kg

DRUGS (3)
  1. LAMICTAL [Suspect]
     Indication: EPILEPSY
     Dosage: 50MG TWICE PER DAY
     Route: 048
     Dates: start: 20070423, end: 20070501
  2. KEPPRA [Suspect]
     Indication: EPILEPSY
     Dosage: 4500MG PER DAY
     Route: 048
  3. TRILEPTAL [Suspect]
     Indication: EPILEPSY
     Route: 065

REACTIONS (13)
  - ANGER [None]
  - DRUG HYPERSENSITIVITY [None]
  - DRUG INEFFECTIVE [None]
  - GRAND MAL CONVULSION [None]
  - HEADACHE [None]
  - ILLITERACY [None]
  - MYOCLONUS [None]
  - PRURITUS [None]
  - RASH [None]
  - SPEECH DISORDER [None]
  - SUICIDAL IDEATION [None]
  - TONGUE BITING [None]
  - URINARY TRACT INFECTION [None]
